FAERS Safety Report 4778638-1 (Version None)
Quarter: 2005Q3

REPORT INFORMATION
  Report Type: 
  Country: None (occurrence: None)
  Receive Date: 20050926
  Receipt Date: 20050922
  Transmission Date: 20060218
  Serious: Yes (Other)
  Sender: FDA-Public Use
  Company Number: BPC-SR-05-106

PATIENT
  Age: 42 Year
  Sex: Female

DRUGS (2)
  1. WELLBUTRIN SR [Suspect]
     Indication: DEPRESSION
     Route: 048
     Dates: start: 20011101
  2. TYLENOL (CAPLET) [Concomitant]
     Route: 048

REACTIONS (1)
  - SUICIDAL IDEATION [None]
